FAERS Safety Report 11066373 (Version 2)
Quarter: 2015Q2

REPORT INFORMATION
  Report Type: Spontaneous
  Country: US (occurrence: US)
  Receive Date: 20150425
  Receipt Date: 20150525
  Transmission Date: 20150821
  Serious: No
  Sender: FDA-Public Use
  Company Number: US-JNJFOC-20130400943

PATIENT
  Sex: Male

DRUGS (1)
  1. REMICADE [Suspect]
     Active Substance: INFLIXIMAB
     Indication: CROHN^S DISEASE
     Dosage: DOSE WAS A LITTLE UNDER 6 MG/KG
     Route: 042

REACTIONS (7)
  - Pain [Unknown]
  - Abdominal discomfort [Unknown]
  - Fatigue [Unknown]
  - Influenza like illness [Unknown]
  - Constipation [Unknown]
  - Nausea [Unknown]
  - Gastrointestinal sounds abnormal [Unknown]
